FAERS Safety Report 8957798 (Version 2)
Quarter: 2013Q1

REPORT INFORMATION
  Report Type: Spontaneous
  Country: US (occurrence: US)
  Receive Date: 20121210
  Receipt Date: 20130304
  Transmission Date: 20140127
  Serious: No
  Sender: FDA-Public Use
  Company Number: US-PFIZER INC-2012309853

PATIENT
  Age: 62 Year
  Sex: Female
  Weight: 42.63 kg

DRUGS (2)
  1. LYRICA [Suspect]
     Indication: PAIN
     Dosage: UNK
  2. GABAPENTIN [Suspect]
     Indication: PAIN
     Dosage: UNK

REACTIONS (7)
  - Vision blurred [Unknown]
  - Influenza [Unknown]
  - Weight decreased [Unknown]
  - Feeling abnormal [Unknown]
  - Gastrointestinal disorder [Unknown]
  - Immune system disorder [Unknown]
  - Bradyphrenia [Unknown]
